FAERS Safety Report 12434601 (Version 4)
Quarter: 2019Q2

REPORT INFORMATION
  Report Type: Spontaneous
  Country: US (occurrence: US)
  Receive Date: 20160603
  Receipt Date: 20190409
  Transmission Date: 20190711
  Serious: Yes (Hospitalization, Other)
  Sender: FDA-Public Use
  Company Number: US-DSJP-DSU-2015-125763

PATIENT

DRUGS (2)
  1. BENICAR [Suspect]
     Active Substance: OLMESARTAN MEDOXOMIL
     Indication: HYPERTENSION
     Dosage: 20 MG, QD
     Route: 048
     Dates: start: 20100325
  2. BENICAR [Suspect]
     Active Substance: OLMESARTAN MEDOXOMIL
     Dosage: 5 MG, QD
     Route: 048

REACTIONS (8)
  - Sprue-like enteropathy [Recovering/Resolving]
  - Peptic ulcer [Unknown]
  - Inflammatory bowel disease [Unknown]
  - Incisional hernia [Unknown]
  - Dizziness [Recovered/Resolved]
  - Constipation [Unknown]
  - Gastrooesophageal reflux disease [Unknown]
  - Inguinal hernia [Unknown]

NARRATIVE: CASE EVENT DATE: 201008
